FAERS Safety Report 13001727 (Version 1)
Quarter: 2016Q4

REPORT INFORMATION
  Report Type: Spontaneous
  Country: US (occurrence: US)
  Receive Date: 20161205
  Receipt Date: 20161205
  Transmission Date: 20170207
  Serious: No
  Sender: FDA-Public Use
  Company Number: None

PATIENT
  Age: 19 Year
  Sex: Male
  Weight: 39.04 kg

DRUGS (2)
  1. OXCARBAZEPINE 300MG [Suspect]
     Active Substance: OXCARBAZEPINE
  2. DIVALPROEX [Suspect]
     Active Substance: DIVALPROEX SODIUM

REACTIONS (2)
  - Product substitution issue [None]
  - Seizure [None]
